FAERS Safety Report 25868568 (Version 1)
Quarter: 2025Q4

REPORT INFORMATION
  Report Type: Report from Study
  Country: US (occurrence: US)
  Receive Date: 20251001
  Receipt Date: 20251001
  Transmission Date: 20260117
  Serious: Yes (Other)
  Sender: ALEXION PHARMACEUTICALS
  Company Number: US-AstraZeneca-CH-00959733A

PATIENT
  Age: 82 Year
  Sex: Female

DRUGS (1)
  1. DAPAGLIFLOZIN [Suspect]
     Active Substance: DAPAGLIFLOZIN
     Dosage: DOSE UNKNOWN
     Route: 065

REACTIONS (7)
  - Product use issue [Unknown]
  - Renal failure [Unknown]
  - Stent placement [Unknown]
  - Diabetes mellitus [Unknown]
  - Product use issue [Unknown]
  - Nervousness [Unknown]
  - Memory impairment [Unknown]
